FAERS Safety Report 16687074 (Version 1)
Quarter: 2019Q3

REPORT INFORMATION
  Report Type: Spontaneous
  Country: US (occurrence: US)
  Receive Date: 20190809
  Receipt Date: 20190809
  Transmission Date: 20191004
  Serious: Yes (Hospitalization, Other)
  Sender: FDA-Public Use
  Company Number: US-AMGEN-USASP2019123330

PATIENT
  Age: 28 Year
  Sex: Female

DRUGS (6)
  1. FILGRASTIM [Suspect]
     Active Substance: FILGRASTIM
     Indication: HAEMATOPOIETIC STEM CELL MOBILISATION
     Dosage: 10 MICROGRAM/KILOGRAM, QD (FOR 4 DAYS)
     Route: 065
  2. ETOPOSIDE. [Concomitant]
     Active Substance: ETOPOSIDE
     Indication: HODGKIN^S DISEASE MIXED CELLULARITY STAGE IV
  3. MELPHALAN. [Concomitant]
     Active Substance: MELPHALAN
     Indication: HODGKIN^S DISEASE MIXED CELLULARITY STAGE IV
  4. NIVOLUMAB [Concomitant]
     Active Substance: NIVOLUMAB
     Indication: HODGKIN^S DISEASE MIXED CELLULARITY STAGE IV
     Dosage: 240 MILLIGRAM, ONE TIME DOSE
  5. CYTARABINE. [Concomitant]
     Active Substance: CYTARABINE
     Indication: HODGKIN^S DISEASE MIXED CELLULARITY STAGE IV
  6. CARMUSTINE. [Concomitant]
     Active Substance: CARMUSTINE
     Indication: HODGKIN^S DISEASE MIXED CELLULARITY STAGE IV

REACTIONS (2)
  - Clostridium difficile infection [Unknown]
  - Cytokine release syndrome [Recovering/Resolving]
